FAERS Safety Report 16532317 (Version 2)
Quarter: 2019Q4

REPORT INFORMATION
  Report Type: Report from Study
  Country: IT (occurrence: IT)
  Receive Date: 20190704
  Receipt Date: 20191010
  Transmission Date: 20200122
  Serious: Yes (Hospitalization)
  Sender: FDA-Public Use
  Company Number: IT-PFIZER INC-2019281935

PATIENT
  Age: 53 Year
  Sex: Male

DRUGS (4)
  1. OLANZAPINE. [Suspect]
     Active Substance: OLANZAPINE
     Dosage: 17.5 MG, TOTAL
     Route: 048
     Dates: start: 20190403, end: 20190403
  2. VENLAFAXINE HCL [Suspect]
     Active Substance: VENLAFAXINE HYDROCHLORIDE
     Dosage: 937.5 MG, TOTAL
     Route: 048
     Dates: start: 20190403, end: 20190403
  3. LEVOPRAID [LEVOSULPIRIDE] [Suspect]
     Active Substance: LEVOSULPIRIDE
     Dosage: 25 MG, TOTAL
     Route: 048
     Dates: start: 20190403, end: 20190403
  4. DIAZEPAM. [Suspect]
     Active Substance: DIAZEPAM
     Dosage: 200 MG, TOTAL
     Route: 048
     Dates: start: 20190403, end: 20190403

REACTIONS (2)
  - Drug abuse [Recovering/Resolving]
  - Sedation [Recovering/Resolving]

NARRATIVE: CASE EVENT DATE: 20190403
